FAERS Safety Report 6590811-9 (Version None)
Quarter: 2010Q1

REPORT INFORMATION
  Report Type: 
  Country: None (occurrence: None)
  Receive Date: 20100219
  Receipt Date: 20100208
  Transmission Date: 20100710
  Serious: Yes (Hospitalization)
  Sender: FDA-Public Use
  Company Number: US-PFIZER INC-2010016863

PATIENT
  Sex: Male
  Weight: 92.986 kg

DRUGS (6)
  1. SUTENT [Suspect]
     Indication: RENAL CANCER
     Dosage: 50 MG, 1X/DAY
     Route: 048
     Dates: start: 20100101
  2. ACETAMINOPHEN AND HYDROCODONE BITARTRATE [Concomitant]
     Indication: PAIN
     Dosage: 10/500 MG
  3. CARVEDILOL [Concomitant]
     Indication: HYPERTENSION
     Dosage: 1 AND 1/2 PILL, 2X/DAY
  4. RANITIDINE [Concomitant]
     Dosage: 150 MG, 1X/DAY
  5. MEGESTROL ACETATE [Concomitant]
     Indication: INCREASED APPETITE
     Dosage: 40 MG, UNK
  6. STOOL SOFTENER [Concomitant]
     Dosage: 100 MG, UNK

REACTIONS (2)
  - BLOOD PRESSURE INCREASED [None]
  - CONVULSION [None]
